FAERS Safety Report 18500788 (Version 2)
Quarter: 2020Q4

REPORT INFORMATION
  Report Type: Report from Study
  Country: GB (occurrence: GB)
  Receive Date: 20201113
  Receipt Date: 20201120
  Transmission Date: 20210114
  Serious: Yes (Hospitalization, Other)
  Sender: FDA-Public Use
  Company Number: GB-TEVA-2020-GB-1848353

PATIENT
  Age: 53 Year
  Sex: Female
  Weight: 79 kg

DRUGS (2)
  1. COPAXONE [Suspect]
     Active Substance: GLATIRAMER ACETATE
     Indication: MULTIPLE SCLEROSIS
     Route: 058
     Dates: start: 20200609, end: 202011
  2. THYROXINE 75MCG [Concomitant]
     Route: 065

REACTIONS (4)
  - Loss of consciousness [Recovered/Resolved]
  - Malaise [Unknown]
  - Illness [Unknown]
  - Feeling cold [Unknown]

NARRATIVE: CASE EVENT DATE: 2020
